FAERS Safety Report 12712258 (Version 1)
Quarter: 2016Q3

REPORT INFORMATION
  Report Type: Spontaneous
  Country: IT (occurrence: IT)
  Receive Date: 20160902
  Receipt Date: 20160902
  Transmission Date: 20161109
  Serious: Yes (Other)
  Sender: FDA-Public Use
  Company Number: IT-PFIZER INC-2016409645

PATIENT
  Age: 50 Year
  Sex: Male

DRUGS (3)
  1. AMPICILLIN SODIUM. [Suspect]
     Active Substance: AMPICILLIN SODIUM
     Indication: LISTERIA ENCEPHALITIS
     Dosage: 2 G, Q 4 H
     Route: 042
     Dates: start: 2014
  2. GENTAMICIN SULFATE. [Suspect]
     Active Substance: GENTAMICIN SULFATE
     Indication: LISTERIA ENCEPHALITIS
     Dosage: 2 MG/KG AS LOADING DOSE
     Route: 042
     Dates: start: 2014
  3. GENTAMICIN SULFATE. [Suspect]
     Active Substance: GENTAMICIN SULFATE
     Dosage: 1.7 MG/KG, 3X/DAY (Q 8 H)
     Route: 042
     Dates: start: 2014

REACTIONS (1)
  - Vestibular neuronitis [Unknown]
